FAERS Safety Report 5128254-7 (Version None)
Quarter: 2006Q4

REPORT INFORMATION
  Report Type: 
  Country: None (occurrence: None)
  Receive Date: 20061011
  Receipt Date: 20060928
  Transmission Date: 20070319
  Serious: Yes (Other)
  Sender: FDA-Public Use
  Company Number: 2006104780

PATIENT
  Age: 15 Year
  Sex: Male
  Weight: 52.1 kg

DRUGS (4)
  1. VFEND [Suspect]
     Indication: MENINGITIS CRYPTOCOCCAL
     Dosage: 800 MG (400 MG, 2 IN 1 D), ORAL
     Route: 048
     Dates: start: 20050812, end: 20060421
  2. MERCAPTOPURINE (MERCAPTOPURINE) [Concomitant]
  3. OMEPRAZOLE [Concomitant]
  4. SEPTRAN (SULFAMETHOXAZOLE, TRIMETHOPRIM) [Concomitant]

REACTIONS (4)
  - BLISTER [None]
  - LIP BLISTER [None]
  - RASH ERYTHEMATOUS [None]
  - SKIN HYPERPIGMENTATION [None]
